FAERS Safety Report 5127497-6 (Version None)
Quarter: 2006Q4

REPORT INFORMATION
  Report Type: 
  Country: None (occurrence: None)
  Receive Date: 20061016
  Receipt Date: 20061002
  Transmission Date: 20070319
  Serious: Yes (Other)
  Sender: FDA-Public Use
  Company Number: PHHO2006JP16612

PATIENT
  Age: 77 Year
  Sex: Female

DRUGS (12)
  1. DIOVAN [Suspect]
     Indication: HYPERTENSION
     Dosage: 160 MG, QD
     Route: 048
     Dates: start: 20030617
  2. DIOVAN [Suspect]
     Dosage: 80 MG, QD
     Route: 048
     Dates: start: 20030506, end: 20030617
  3. CALSLOT [Concomitant]
     Indication: HYPERTENSION
  4. LIPOVAS [Concomitant]
     Indication: HYPERCHOLESTEROLAEMIA
  5. FK [Concomitant]
     Indication: GASTRITIS
  6. ACINON [Concomitant]
     Indication: GASTRITIS
  7. LANSOPRAZOLE [Concomitant]
     Indication: REFLUX OESOPHAGITIS
  8. ALFAROL [Concomitant]
     Indication: OSTEOPOROSIS
  9. ASPIRIN [Concomitant]
     Indication: CEREBRAL ARTERY STENOSIS
  10. CALBLOCK [Concomitant]
     Indication: HYPERTENSION
  11. ARTIST [Concomitant]
     Indication: HYPERTENSION
  12. BUFFERIN [Concomitant]

REACTIONS (3)
  - CEREBRAL ARTERY STENOSIS [None]
  - INTRACRANIAL ANEURYSM [None]
  - LACUNAR INFARCTION [None]
